FAERS Safety Report 19843363 (Version 1)
Quarter: 2021Q3

REPORT INFORMATION
  Report Type: Report from Study
  Country: PA (occurrence: PA)
  Receive Date: 20210917
  Receipt Date: 20210917
  Transmission Date: 20211014
  Serious: Yes (Other)
  Sender: FDA-Public Use
  Company Number: PHHY2019PA134057

PATIENT
  Sex: Female

DRUGS (1)
  1. GILENYA [Suspect]
     Active Substance: FINGOLIMOD HYDROCHLORIDE
     Indication: MULTIPLE SCLEROSIS
     Dosage: 0.5 MG, QD
     Route: 048
     Dates: start: 20190515

REACTIONS (13)
  - Pain in extremity [Unknown]
  - Limb discomfort [Unknown]
  - Eye pain [Unknown]
  - Head discomfort [Unknown]
  - Back pain [Unknown]
  - Memory impairment [Unknown]
  - Hypoaesthesia [Unknown]
  - Anxiety [Unknown]
  - Spinal cord injury cervical [Unknown]
  - Stress [Unknown]
  - Headache [Unknown]
  - Myalgia [Not Recovered/Not Resolved]
  - Sleep disorder [Unknown]
